FAERS Safety Report 16264027 (Version 2)
Quarter: 2021Q1

REPORT INFORMATION
  Report Type: Other
  Country: BG (occurrence: BG)
  Receive Date: 20190502
  Receipt Date: 20210309
  Transmission Date: 20210419
  Serious: Yes (Hospitalization)
  Sender: FDA-Public Use
  Company Number: BG-ROCHE-2308237

PATIENT
  Age: 73 Year
  Sex: Female
  Weight: 59 kg

DRUGS (16)
  1. MANITOL [Concomitant]
     Active Substance: MANNITOL
     Indication: PAIN
     Dosage: ONGOING = NOT CHECKED
     Dates: start: 20190305, end: 20190315
  2. TRASTUZUMAB. [Suspect]
     Active Substance: TRASTUZUMAB
     Indication: HER2 POSITIVE BREAST CANCER
     Dosage: ON 11/FEB/2019, RECEIVED MOST RECENT DOSE OF TRASTUZUMAB.
     Route: 041
     Dates: start: 20180720
  3. DEXKETOPROFEN [Concomitant]
     Active Substance: DEXKETOPROFEN
     Indication: PAIN
     Dosage: ONGOING = NOT CHECKED
     Dates: start: 20190305, end: 20190315
  4. DEGAN [Concomitant]
     Active Substance: METOCLOPRAMIDE HYDROCHLORIDE
     Indication: PAIN
     Dosage: ONGOING = NOT CHECKED
     Dates: start: 20190305, end: 20190315
  5. TRAMADOL. [Concomitant]
     Active Substance: TRAMADOL
     Dosage: ONGOING = NOT CHECKED
     Dates: start: 20180405, end: 20190305
  6. METRONIDAZOLE. [Concomitant]
     Active Substance: METRONIDAZOLE
     Indication: INGUINAL HERNIA
     Dosage: ONGOING = NOT CHECKED
     Dates: start: 20190211, end: 20190213
  7. FRAXIPARIN [Concomitant]
     Active Substance: NADROPARIN CALCIUM
     Indication: INGUINAL HERNIA
     Dosage: ONGOING = NOT CHECKED
     Dates: start: 20190211, end: 20190213
  8. CAPECITABINE. [Suspect]
     Active Substance: CAPECITABINE
     Indication: HER2 POSITIVE BREAST CANCER
     Dosage: ON 11/FEB/2019, RECEIVED MOST RECENT DOSE OF CAPECITABINE.
     Route: 048
     Dates: start: 20181213
  9. OLSART [Concomitant]
     Dosage: ONGOING = CHECKED
     Dates: start: 20140615
  10. MORFIN [Concomitant]
     Indication: PAIN
     Dosage: ONGOING = NOT CHECKED
     Dates: start: 20190305, end: 20190315
  11. DEXAMETHASONE. [Concomitant]
     Active Substance: DEXAMETHASONE
     Indication: PAIN
     Dosage: ONGOING = NOT CHECKED
     Dates: end: 20190315
  12. NEURONTIN [Concomitant]
     Active Substance: GABAPENTIN
     Indication: PAIN
     Dosage: ONGOING = NOT CHECKED
     Dates: start: 20190305, end: 20190315
  13. DOCETAXEL. [Suspect]
     Active Substance: DOCETAXEL
     Indication: HER2 POSITIVE BREAST CANCER
     Dosage: ON 14/NOV/2018, RECEIVED MOST RECENT DOSE OF DOCETAXEL.
     Route: 042
     Dates: start: 20180720
  14. ASPIRIN. [Concomitant]
     Active Substance: ASPIRIN
     Dosage: ONGOING = CHECKED
     Dates: start: 20140615
  15. PREDNISOLONE. [Concomitant]
     Active Substance: PREDNISOLONE
     Dosage: ONGOING = CHECKED
     Dates: start: 20000615
  16. BUPRENORPHIN [Concomitant]
     Active Substance: BUPRENORPHINE
     Indication: PAIN
     Dosage: ONGOING = CHECKED
     Dates: start: 20190305

REACTIONS (1)
  - Inguinal hernia [Recovered/Resolved]

NARRATIVE: CASE EVENT DATE: 20190211
